FAERS Safety Report 9385424 (Version 1)
Quarter: 2013Q3

REPORT INFORMATION
  Report Type: Report from Study
  Country: FR (occurrence: FR)
  Receive Date: 20130705
  Receipt Date: 20130705
  Transmission Date: 20140515
  Serious: Yes (Death)
  Sender: FDA-Public Use
  Company Number: FR-009507513-1211FRA005264

PATIENT
  Age: 51 Year
  Sex: Male
  Weight: 96 kg

DRUGS (7)
  1. SITAGLIPTIN PHOSPHATE [Suspect]
     Indication: TYPE 2 DIABETES MELLITUS
     Dosage: 100 MG, QD
     Route: 048
     Dates: start: 20100329
  2. METFORMIN [Concomitant]
     Indication: TYPE 2 DIABETES MELLITUS
     Dosage: 1000 MG, BID
     Route: 048
     Dates: start: 20100329
  3. NOVO-NORM [Concomitant]
     Indication: TYPE 2 DIABETES MELLITUS
     Dosage: 2 MG, TID
     Route: 048
     Dates: start: 20100329
  4. NOVO-NORM [Concomitant]
     Indication: TYPE 2 DIABETES MELLITUS
  5. BISOPROLOL [Concomitant]
     Indication: HYPERTENSION
     Dosage: 1 DF, UNKNOWN
     Dates: start: 19990622, end: 20111117
  6. ELISOR [Concomitant]
     Indication: HYPERLIPIDAEMIA
     Dosage: 1 DF, UNKNOWN
     Dates: start: 20030522, end: 20111117
  7. ALLOPURINOL [Concomitant]
     Indication: GOUT
     Dosage: UNK
     Dates: start: 20020816, end: 20111117

REACTIONS (4)
  - Wound infection [Fatal]
  - Diabetic ketoacidotic hyperglycaemic coma [Fatal]
  - Septic shock [Fatal]
  - Diabetes mellitus inadequate control [Fatal]
